FAERS Safety Report 11632457 (Version 3)
Quarter: 2016Q1

REPORT INFORMATION
  Report Type: Spontaneous
  Country: US (occurrence: US)
  Receive Date: 20151015
  Receipt Date: 20160113
  Transmission Date: 20160525
  Serious: Yes (Life-Threatening, Hospitalization, Disabling, Other)
  Sender: FDA-Public Use
  Company Number: US-BAYER-2015-443959

PATIENT
  Age: 32 Year
  Sex: Female
  Weight: 98.41 kg

DRUGS (1)
  1. MIRENA [Suspect]
     Active Substance: LEVONORGESTREL
     Indication: CONTRACEPTION
     Dosage: 20 MCG/24HR, CONT
     Route: 015
     Dates: start: 20071214, end: 20121127

REACTIONS (12)
  - Pregnancy with contraceptive device [None]
  - Injury [None]
  - Haemorrhage in pregnancy [None]
  - Balance disorder [None]
  - Drug ineffective [None]
  - Pelvic pain [None]
  - Abortion spontaneous [None]
  - Anxiety [None]
  - Uterine perforation [None]
  - General physical health deterioration [None]
  - Device issue [None]
  - Anhedonia [None]

NARRATIVE: CASE EVENT DATE: 2012
